FAERS Safety Report 15793047 (Version 2)
Quarter: 2019Q1

REPORT INFORMATION
  Report Type: Spontaneous
  Country: US (occurrence: US)
  Receive Date: 20190107
  Receipt Date: 20190302
  Transmission Date: 20190417
  Serious: No
  Sender: FDA-Public Use
  Company Number: US-TEVA-2018-US-906882

PATIENT
  Age: 71 Year
  Sex: Male

DRUGS (2)
  1. GABAPENTIN ACTAVIS [Suspect]
     Active Substance: GABAPENTIN
     Indication: ANXIETY
     Dosage: 1800 MILLIGRAM DAILY;
     Route: 065
     Dates: start: 20180607
  2. GABAPENTIN ACTAVIS [Suspect]
     Active Substance: GABAPENTIN
     Route: 065
     Dates: start: 2010, end: 201809

REACTIONS (8)
  - Product substitution issue [Unknown]
  - Fatigue [Not Recovered/Not Resolved]
  - Balance disorder [Not Recovered/Not Resolved]
  - Speech disorder [Not Recovered/Not Resolved]
  - Memory impairment [Not Recovered/Not Resolved]
  - Product prescribing error [Unknown]
  - Somnolence [Not Recovered/Not Resolved]
  - Wrong technique in product usage process [Unknown]

NARRATIVE: CASE EVENT DATE: 2010
